FAERS Safety Report 12004339 (Version 2)
Quarter: 2016Q1

REPORT INFORMATION
  Report Type: Spontaneous
  Country: JP (occurrence: JP)
  Receive Date: 20160204
  Receipt Date: 20160301
  Transmission Date: 20160526
  Serious: Yes (Other)
  Sender: FDA-Public Use
  Company Number: JP-TEVA-624177ISR

PATIENT
  Age: 7 Decade
  Sex: Male

DRUGS (2)
  1. TRISENOX [Suspect]
     Active Substance: ARSENIC TRIOXIDE
     Dates: start: 201512, end: 20160130
  2. TRISENOX [Suspect]
     Active Substance: ARSENIC TRIOXIDE
     Dates: start: 20151114, end: 20151130

REACTIONS (3)
  - Granulocytopenia [Unknown]
  - Pyrexia [Unknown]
  - White blood cell count increased [Unknown]

NARRATIVE: CASE EVENT DATE: 20151129
